FAERS Safety Report 9812679 (Version 4)
Quarter: 2014Q1

REPORT INFORMATION
  Report Type: Report from Study
  Country: ES (occurrence: ES)
  Receive Date: 20140113
  Receipt Date: 20140130
  Transmission Date: 20141002
  Serious: Yes (Hospitalization)
  Sender: FDA-Public Use
  Company Number: ES-ROCHE-1331406

PATIENT
  Age: 45 Year
  Sex: Female
  Weight: 113 kg

DRUGS (5)
  1. TOCILIZUMAB [Suspect]
     Indication: RHEUMATOID ARTHRITIS
     Dosage: LAST DOSE PRIOR TO SAE: 18/DEC/2013, DOSE WAS TEMPORARILY INTERRUPTED
     Route: 058
     Dates: start: 20131204, end: 20140101
  2. INDOMETACINE [Concomitant]
     Route: 065
     Dates: start: 20130925
  3. FOLIC ACID [Concomitant]
     Route: 065
     Dates: start: 20131008
  4. OMEPRAZOLE [Concomitant]
     Route: 065
     Dates: start: 20060420
  5. METHOTREXATE [Concomitant]
     Route: 065
     Dates: start: 20131008

REACTIONS (2)
  - Pulmonary embolism [Recovered/Resolved]
  - Thrombophlebitis [Recovered/Resolved]
